FAERS Safety Report 16903535 (Version 1)
Quarter: 2019Q4

REPORT INFORMATION
  Report Type: Spontaneous
  Country: US (occurrence: US)
  Receive Date: 20191009
  Receipt Date: 20191009
  Transmission Date: 20200122
  Serious: No
  Sender: FDA-Public Use
  Company Number: None

PATIENT
  Age: 52 Year
  Sex: Female
  Weight: 83.25 kg

DRUGS (3)
  1. SMZ-TMP DS 800-160 MG TAB RISI [Suspect]
     Active Substance: SULFAMETHOXAZOLE\TRIMETHOPRIM
     Indication: INFECTION
     Route: 048
     Dates: start: 20190929, end: 20191006
  2. SMZ-TMP DS 800-160 MG TAB RISI [Suspect]
     Active Substance: SULFAMETHOXAZOLE\TRIMETHOPRIM
     Indication: PHLEBITIS
     Route: 048
     Dates: start: 20190929, end: 20191006
  3. KEFLEX [Suspect]
     Active Substance: CEPHALEXIN

REACTIONS (6)
  - Pain [None]
  - Bedridden [None]
  - Chills [None]
  - Drug interaction [None]
  - Influenza like illness [None]
  - Blister [None]

NARRATIVE: CASE EVENT DATE: 20191007
